FAERS Safety Report 8008998-X (Version None)
Quarter: 2011Q4

REPORT INFORMATION
  Report Type: 
  Country: None (occurrence: None)
  Receive Date: 20111227
  Receipt Date: 20111215
  Transmission Date: 20120403
  Serious: No
  Sender: FDA-Public Use
  Company Number: US-PFIZER INC-2011311517

PATIENT
  Sex: Female

DRUGS (1)
  1. FLAGYL [Suspect]

REACTIONS (1)
  - DRUG INEFFECTIVE [None]
